FAERS Safety Report 9956329 (Version 1)
Quarter: 2014Q1

REPORT INFORMATION
  Report Type: Spontaneous
  Country: US (occurrence: US)
  Receive Date: 20140304
  Receipt Date: 20140304
  Transmission Date: 20141002
  Serious: Yes (Other)
  Sender: FDA-Public Use
  Company Number: US-TMC-CABO-14004053

PATIENT
  Sex: Female

DRUGS (2)
  1. COMETRIQ [Suspect]
     Indication: MEDULLARY THYROID CANCER
     Dosage: 60 MG, QD
     Route: 065
     Dates: start: 2013
  2. COMETRIQ [Suspect]
     Dosage: 60 MG, QOD
     Route: 065
     Dates: end: 20140226

REACTIONS (3)
  - Hypertension [Unknown]
  - Malaise [Unknown]
  - Fatigue [Unknown]
